FAERS Safety Report 7273000-4 (Version None)
Quarter: 2011Q1

REPORT INFORMATION
  Report Type: 
  Country: None (occurrence: None)
  Receive Date: 20110203
  Receipt Date: 20110127
  Transmission Date: 20110831
  Serious: Yes (Other)
  Sender: FDA-Public Use
  Company Number: A0911496A

PATIENT
  Age: 61 Year
  Sex: Female

DRUGS (1)
  1. ADVAIR [Suspect]
     Indication: ASTHMA
     Route: 055
     Dates: start: 20060206

REACTIONS (5)
  - MIGRAINE [None]
  - ASTHMA [None]
  - TREATMENT NONCOMPLIANCE [None]
  - DYSPNOEA [None]
  - COUGH [None]
